FAERS Safety Report 5114523-3 (Version None)
Quarter: 2006Q3

REPORT INFORMATION
  Report Type: 
  Country: None (occurrence: None)
  Receive Date: 20060922
  Receipt Date: 20060922
  Transmission Date: 20061208
  Serious: Yes (Other)
  Sender: FDA-Public Use
  Company Number: None

PATIENT
  Age: 19 Year
  Sex: Female
  Weight: 83.9154 kg

DRUGS (1)
  1. CYTOTEC [Suspect]
     Indication: LABOUR INDUCTION
     Dosage: 1 TABLET      INTRACERVIC
     Route: 019
     Dates: start: 20060918, end: 20060919

REACTIONS (2)
  - FOETAL HEART RATE DECREASED [None]
  - UTERINE INJURY [None]
